FAERS Safety Report 9817271 (Version 2)
Quarter: 2019Q3

REPORT INFORMATION
  Report Type: Spontaneous
  Country: US (occurrence: US)
  Receive Date: 20140115
  Receipt Date: 20190917
  Transmission Date: 20191005
  Serious: Yes (Other)
  Sender: FDA-Public Use
  Company Number: US-PFIZER INC-2014007631

PATIENT
  Age: 61 Year
  Sex: Male

DRUGS (2)
  1. VIAGRA [Suspect]
     Active Substance: SILDENAFIL CITRATE
     Indication: ERECTILE DYSFUNCTION
     Dosage: 50 MG, ALTERNATE DAY [STRENGTH: 100 MG; DIRECTIONS: 50 MG EVERY OTHER DAY]
  2. VIAGRA [Suspect]
     Active Substance: SILDENAFIL CITRATE
     Dosage: 0.5 DF, AS NEEDED  (TAKE 1/2 TABLET BY MOUTH DAILY)
     Route: 048

REACTIONS (1)
  - Prostate cancer [Unknown]
